FAERS Safety Report 12648444 (Version 1)
Quarter: 2016Q3

REPORT INFORMATION
  Report Type: Spontaneous
  Country: US (occurrence: US)
  Receive Date: 20160812
  Receipt Date: 20160812
  Transmission Date: 20161109
  Serious: Yes (Other)
  Sender: FDA-Public Use
  Company Number: US-LUNDBECK-DKLU2017555

PATIENT
  Sex: Male

DRUGS (1)
  1. SABRIL [Suspect]
     Active Substance: VIGABATRIN
     Indication: PARTIAL SEIZURES
     Route: 048
     Dates: start: 201510

REACTIONS (5)
  - Loss of consciousness [Unknown]
  - Visual impairment [Unknown]
  - Fall [Unknown]
  - Drug dose omission [Unknown]
  - Sciatic nerve injury [Unknown]
